FAERS Safety Report 7235276-9 (Version None)
Quarter: 2011Q1

REPORT INFORMATION
  Report Type: 
  Country: None (occurrence: None)
  Receive Date: 20110120
  Receipt Date: 20110110
  Transmission Date: 20110831
  Serious: Yes (Other)
  Sender: FDA-Public Use
  Company Number: CA-JNJFOC-20110103185

PATIENT
  Sex: Male
  Weight: 86.2 kg

DRUGS (5)
  1. TYLENOL [Concomitant]
     Indication: PREMEDICATION
  2. SOLU-CORTEF [Concomitant]
     Route: 042
  3. AERIUS [Concomitant]
     Indication: PREMEDICATION
  4. REMICADE [Suspect]
     Indication: PSORIASIS
     Route: 042
  5. REMICADE [Suspect]
     Dosage: 4TH INFUSION
     Route: 042

REACTIONS (5)
  - EYE MOVEMENT DISORDER [None]
  - DYSKINESIA [None]
  - PSORIASIS [None]
  - PALLOR [None]
  - HYPERHIDROSIS [None]
